FAERS Safety Report 16532342 (Version 1)
Quarter: 2019Q3

REPORT INFORMATION
  Report Type: Report from Study
  Country: IT (occurrence: IT)
  Receive Date: 20190704
  Receipt Date: 20190704
  Transmission Date: 20191004
  Serious: Yes (Other)
  Sender: FDA-Public Use
  Company Number: IT-PFIZER INC-2019279337

PATIENT
  Age: 53 Year
  Sex: Female

DRUGS (1)
  1. TAVOR (LORAZEPAM) [Suspect]
     Active Substance: LORAZEPAM
     Dosage: 20 MG, SINGLE
     Route: 048
     Dates: start: 20190302, end: 20190303

REACTIONS (4)
  - Overdose [Unknown]
  - Drug abuse [Unknown]
  - Hypotension [Unknown]
  - Hypokinesia [Unknown]

NARRATIVE: CASE EVENT DATE: 20190302
